FAERS Safety Report 14777261 (Version 3)
Quarter: 2020Q2

REPORT INFORMATION
  Report Type: Report from Study
  Country: None (occurrence: US)
  Receive Date: 20180419
  Receipt Date: 20200610
  Transmission Date: 20200713
  Serious: Yes (Other)
  Sender: FDA-Public Use
  Company Number: US-ABBVIE-18K-163-2324428-00

PATIENT
  Sex: Male
  Weight: 92.62 kg

DRUGS (3)
  1. HUMIRA [Suspect]
     Active Substance: ADALIMUMAB
     Route: 058
     Dates: start: 201806, end: 2019
  2. HUMIRA [Suspect]
     Active Substance: ADALIMUMAB
     Indication: CROHN^S DISEASE
     Route: 058
     Dates: start: 20161229, end: 2018
  3. HUMIRA [Suspect]
     Active Substance: ADALIMUMAB
     Route: 058
     Dates: start: 201906

REACTIONS (10)
  - Hypoaesthesia [Recovered/Resolved]
  - Nervous system cyst [Recovered/Resolved]
  - Pain in extremity [Recovered/Resolved]
  - Oral candidiasis [Not Recovered/Not Resolved]
  - Neck pain [Recovered/Resolved]
  - Oesophageal dilatation [Unknown]
  - Photosensitivity reaction [Not Recovered/Not Resolved]
  - Crohn^s disease [Not Recovered/Not Resolved]
  - Osteoarthritis [Recovered/Resolved]
  - Musculoskeletal disorder [Recovered/Resolved]

NARRATIVE: CASE EVENT DATE: 2017
